FAERS Safety Report 25870738 (Version 2)
Quarter: 2025Q4

REPORT INFORMATION
  Report Type: Spontaneous
  Country: EU (occurrence: EU)
  Receive Date: 20251001
  Receipt Date: 20251009
  Transmission Date: 20260118
  Serious: Yes (Death, Hospitalization, Other)
  Sender: GILEAD
  Company Number: EU-GILEAD-2025-0729996

PATIENT
  Age: 47 Year
  Sex: Female

DRUGS (7)
  1. TRODELVY [Suspect]
     Active Substance: SACITUZUMAB GOVITECAN-HZIY
     Indication: Triple negative breast cancer
     Dosage: C1D1
     Route: 065
     Dates: start: 20250616
  2. TRODELVY [Suspect]
     Active Substance: SACITUZUMAB GOVITECAN-HZIY
     Dosage: C2D1
     Route: 065
     Dates: start: 20250715
  3. TRODELVY [Suspect]
     Active Substance: SACITUZUMAB GOVITECAN-HZIY
     Dosage: C2D8
     Route: 065
  4. TRODELVY [Suspect]
     Active Substance: SACITUZUMAB GOVITECAN-HZIY
     Dosage: C3D1
     Route: 065
     Dates: start: 20250811
  5. TRODELVY [Suspect]
     Active Substance: SACITUZUMAB GOVITECAN-HZIY
     Dosage: C3D8
     Route: 065
     Dates: start: 20250825
  6. TRODELVY [Suspect]
     Active Substance: SACITUZUMAB GOVITECAN-HZIY
     Dosage: C4D1
     Route: 065
     Dates: start: 20250908
  7. TRODELVY [Suspect]
     Active Substance: SACITUZUMAB GOVITECAN-HZIY
     Dosage: C4D8
     Route: 065
     Dates: start: 20250915

REACTIONS (10)
  - Death [Fatal]
  - Febrile bone marrow aplasia [Unknown]
  - Disease progression [Unknown]
  - Brain injury [Unknown]
  - General physical health deterioration [Unknown]
  - Constipation [Unknown]
  - Abdominal pain [Unknown]
  - General physical condition abnormal [Unknown]
  - Incorrect drug administration rate [Unknown]
  - Intentional product use issue [Unknown]

NARRATIVE: CASE EVENT DATE: 20250912
